FAERS Safety Report 21407837 (Version 3)
Quarter: 2022Q4

REPORT INFORMATION
  Report Type: Spontaneous
  Country: US (occurrence: US)
  Receive Date: 20221004
  Receipt Date: 20221226
  Transmission Date: 20230113
  Serious: No
  Sender: FDA-Public Use
  Company Number: US-NOVARTISTESTPH-NVSC2022US221580

PATIENT
  Age: 51 Year
  Sex: Male

DRUGS (1)
  1. KESIMPTA [Suspect]
     Active Substance: OFATUMUMAB
     Indication: Multiple sclerosis
     Dosage: UNK
     Route: 058
     Dates: start: 20211101

REACTIONS (6)
  - Haemoglobin increased [Unknown]
  - Haematocrit increased [Unknown]
  - Blood creatinine increased [Unknown]
  - Full blood count abnormal [Unknown]
  - Red blood cell count increased [Unknown]
  - Neutrophil count increased [Unknown]
